FAERS Safety Report 6928733-3 (Version None)
Quarter: 2010Q3

REPORT INFORMATION
  Report Type: 
  Country: None (occurrence: None)
  Receive Date: 20100817
  Receipt Date: 20100813
  Transmission Date: 20110219
  Serious: Yes (Hospitalization)
  Sender: FDA-Public Use
  Company Number: BE-BRISTOL-MYERS SQUIBB COMPANY-15195415

PATIENT
  Age: 71 Year
  Sex: Female
  Weight: 66 kg

DRUGS (13)
  1. CISPLATIN [Suspect]
     Indication: NON-SMALL CELL LUNG CANCER STAGE III
     Dosage: REGIMEN2: 75MG, IV 21JUN2010-21JUN2010;1DAY
     Route: 042
     Dates: start: 20100510
  2. PEMETREXED DISODIUM [Suspect]
     Indication: NON-SMALL CELL LUNG CANCER STAGE III
     Dosage: 495MG; 21JUN-21JUN2010, 1DAY
     Route: 042
     Dates: start: 20100510
  3. RADIATION THERAPY [Suspect]
     Indication: NON-SMALL CELL LUNG CANCER STAGE III
     Dosage: 2DF= 2 GY EVERY DAY
     Route: 065
     Dates: start: 20100510, end: 20100623
  4. FOLIC ACID [Concomitant]
     Dates: start: 20100503
  5. VITAMIN B-12 [Concomitant]
     Dates: start: 20100503
  6. MEDROL [Concomitant]
     Dates: start: 20100503
  7. SERETIDE [Concomitant]
     Indication: ASTHMA
  8. PROPAFENONE HCL [Concomitant]
     Indication: TACHYCARDIA
  9. OMEPRAZOLE [Concomitant]
     Indication: HIATUS HERNIA
  10. ZOLPIDEM [Concomitant]
     Indication: INSOMNIA
  11. MOTILIUM [Concomitant]
     Indication: NAUSEA
     Dates: start: 20080510
  12. LITICAN [Concomitant]
     Indication: NAUSEA
     Dates: start: 20080518
  13. DEXAMETHASONE [Concomitant]
     Dates: start: 20100503

REACTIONS (1)
  - NAUSEA [None]
